FAERS Safety Report 6444705-X (Version None)
Quarter: 2009Q4

REPORT INFORMATION
  Report Type: 
  Country: None (occurrence: None)
  Receive Date: 20091118
  Receipt Date: 20091116
  Transmission Date: 20100525
  Serious: Yes (Hospitalization)
  Sender: FDA-Public Use
  Company Number: A0805741A

PATIENT
  Age: 48 Year
  Sex: Male

DRUGS (6)
  1. WELLBUTRIN [Suspect]
     Indication: DEPRESSION
     Dosage: 150MG UNKNOWN
     Route: 048
     Dates: end: 20090731
  2. REBIF [Suspect]
     Indication: MULTIPLE SCLEROSIS
     Dosage: 44MCG THREE TIMES PER WEEK
     Route: 058
     Dates: start: 20070101
  3. BENAZEPRIL HYDROCHLORIDE [Concomitant]
  4. LEVOTHYROXINE SODIUM [Concomitant]
     Indication: HYPOTHYROIDISM
  5. PRILOSEC [Concomitant]
  6. CETIRIZINE [Concomitant]
     Indication: ASTHMA

REACTIONS (7)
  - BLOOD PRESSURE DIASTOLIC INCREASED [None]
  - CONVULSION [None]
  - FALL [None]
  - GRAND MAL CONVULSION [None]
  - HEAD INJURY [None]
  - LOCAL SWELLING [None]
  - LOSS OF CONSCIOUSNESS [None]
